FAERS Safety Report 22526854 (Version 1)
Quarter: 2023Q2

REPORT INFORMATION
  Report Type: Spontaneous
  Country: KR (occurrence: KR)
  Receive Date: 20230606
  Receipt Date: 20230606
  Transmission Date: 20230721
  Serious: Yes (Hospitalization)
  Sender: FDA-Public Use
  Company Number: KR-ORGANON-O2306KOR000103

PATIENT
  Age: 63 Year
  Sex: Male

DRUGS (19)
  1. COZAAR [Suspect]
     Active Substance: LOSARTAN POTASSIUM
     Dosage: 100 MILLIGRAM,1 DAY(QD)
     Route: 048
     Dates: start: 20181010, end: 20181012
  2. LOSARTAN POTASSIUM [Concomitant]
     Active Substance: LOSARTAN POTASSIUM
     Dosage: 50 MILLIGRAM, 1 DAY(QD)
     Route: 048
     Dates: end: 20181009
  3. LOSARTAN POTASSIUM [Concomitant]
     Active Substance: LOSARTAN POTASSIUM
     Dosage: 50 MILLIGRAM, 1 DAY(QD)
     Route: 048
     Dates: start: 20181012, end: 20181024
  4. ATORVASTATIN\EZETIMIBE [Concomitant]
     Active Substance: ATORVASTATIN\EZETIMIBE
     Indication: Hyperlipidaemia
     Dosage: 12.5 MILLIGRAM, 1DAY(QD), FORMULATION: FILM-COATED TABLET
     Route: 048
     Dates: start: 20181210
  5. AMLODIPINE BESYLATE\HYDROCHLOROTHIAZIDE\OLMESARTAN MEDOXOMIL [Concomitant]
     Active Substance: AMLODIPINE BESYLATE\HYDROCHLOROTHIAZIDE\OLMESARTAN MEDOXOMIL
     Dosage: 12.5 MILLIGRAM,  1DAY(QD), FORMULATION: FILM COATED TABLETS
     Route: 048
     Dates: start: 20190107
  6. ROSUVASTATIN CALCIUM [Concomitant]
     Active Substance: ROSUVASTATIN CALCIUM
     Indication: Hyperlipidaemia
     Dosage: 10 MILLIGRAM, 1 DAY(QD)
     Route: 048
     Dates: end: 20181009
  7. ROSUVASTATIN CALCIUM [Concomitant]
     Active Substance: ROSUVASTATIN CALCIUM
     Dosage: 10 MILLIGRAM, 1 DAY(QD)
     Route: 048
     Dates: start: 20181010, end: 20181209
  8. LINAGLIPTIN [Concomitant]
     Active Substance: LINAGLIPTIN
     Indication: Diabetes mellitus
     Dosage: 1 FORMULATION, 1 DAY(QD)
     Route: 048
     Dates: end: 20181008
  9. LINAGLIPTIN [Concomitant]
     Active Substance: LINAGLIPTIN
     Dosage: 5 MILLIGRAM, 1 DAY(QD)
     Route: 048
     Dates: start: 20181011, end: 20181023
  10. METFORMIN HYDROCHLORIDE [Concomitant]
     Active Substance: METFORMIN HYDROCHLORIDE
     Indication: Diabetes mellitus
     Dosage: 1 FORMULATION, 1 DAY(QD)
     Route: 048
     Dates: end: 20180912
  11. METFORMIN HYDROCHLORIDE [Concomitant]
     Active Substance: METFORMIN HYDROCHLORIDE
     Dosage: 2 FORMULATION, 0.5 DAY(Q12H)
     Route: 048
     Dates: start: 20180913, end: 20180925
  12. METFORMIN HYDROCHLORIDE [Concomitant]
     Active Substance: METFORMIN HYDROCHLORIDE
     Dosage: 500 MILLIGRAM, 1 DAY(QD)
     Route: 048
     Dates: start: 20181011, end: 20181024
  13. GLIMEPIRIDE [Concomitant]
     Active Substance: GLIMEPIRIDE
     Indication: Diabetes mellitus
     Dosage: 2 FORMULATION, 0.5 DAY(Q12H);  FORMULATION: UNCOATED TABLET
     Route: 048
     Dates: start: 20180913, end: 20180925
  14. GLIMEPIRIDE [Concomitant]
     Active Substance: GLIMEPIRIDE
     Dosage: 1 FORMULATION, 1 DAY(QD), FORMULATION: UNCOATED TABLET
     Route: 048
     Dates: start: 20180926, end: 20181008
  15. LANSOPRAZOLE [Concomitant]
     Active Substance: LANSOPRAZOLE
     Dosage: 15 MILLIGRAM, 1DAY(QD)
     Route: 048
     Dates: start: 20180709, end: 20190210
  16. METFORMIN HYDROCHLORIDE [Concomitant]
     Active Substance: METFORMIN HYDROCHLORIDE
     Indication: Diabetes mellitus
     Dosage: 500 MILLIGRAM, 0.5 DAY(Q12H)
     Route: 048
     Dates: start: 20181024
  17. MIRABEGRON [Concomitant]
     Active Substance: MIRABEGRON
     Dosage: 50 MILLIGRAM, 1 DAY(QD), FORMULATION REPORTED AS SUSTAINED-RELEASE FILM-COATED TABLETS
     Route: 048
     Dates: start: 20181112
  18. SILODOSIN [Concomitant]
     Active Substance: SILODOSIN
     Indication: Dysuria
     Dosage: 8 MILLIGRAM, 1DAY(QD)
     Route: 048
     Dates: start: 20181112
  19. PREGABALIN [Concomitant]
     Active Substance: PREGABALIN
     Dosage: 75 MILLIGRAM, 0.5 DAY(Q12H), FORMULATION REPORTED AS HARD CAPSULES, POWDER
     Route: 048
     Dates: start: 20181210

REACTIONS (1)
  - Abscess [Recovered/Resolved]

NARRATIVE: CASE EVENT DATE: 20190211
